FAERS Safety Report 25885192 (Version 1)
Quarter: 2025Q4

REPORT INFORMATION
  Report Type: Spontaneous
  Country: US (occurrence: None)
  Receive Date: 20251003
  Receipt Date: 20251003
  Transmission Date: 20260118
  Serious: No
  Sender: FDA-CTU
  Company Number: None

PATIENT
  Age: 77 Year
  Sex: Male
  Weight: 76.5 kg

DRUGS (7)
  1. ROSUVASTATIN CALCIUM [Suspect]
     Active Substance: ROSUVASTATIN CALCIUM
     Indication: Blood cholesterol increased
     Dosage: FREQUENCY : DAILY;?
     Route: 048
     Dates: start: 20250729
  2. EZETIMIBE [Suspect]
     Active Substance: EZETIMIBE
  3. ELIQUIS [Concomitant]
     Active Substance: APIXABAN
  4. CRESTOR [Concomitant]
     Active Substance: ROSUVASTATIN CALCIUM
  5. METOPROLOL [Concomitant]
     Active Substance: METOPROLOL
  6. AMLODIPINE [Concomitant]
     Active Substance: AMLODIPINE BESYLATE
  7. PROBIOTICS NOS [Concomitant]
     Active Substance: PROBIOTICS NOS

REACTIONS (2)
  - Abnormal dreams [None]
  - Middle insomnia [None]

NARRATIVE: CASE EVENT DATE: 20250811
